FAERS Safety Report 15084254 (Version 12)
Quarter: 2020Q4

REPORT INFORMATION
  Report Type: Spontaneous
  Country: US (occurrence: US)
  Receive Date: 20180628
  Receipt Date: 20201202
  Transmission Date: 20210113
  Serious: Yes (Hospitalization, Congenital Anomaly, Other)
  Sender: FDA-Public Use
  Company Number: PHEH2018US026222

PATIENT
  Sex: Female

DRUGS (1)
  1. ZOFRAN [Suspect]
     Active Substance: ONDANSETRON HYDROCHLORIDE
     Indication: FOETAL EXPOSURE DURING PREGNANCY
     Dosage: MOTHER DOSE: 8 MG, Q6H
     Route: 064

REACTIONS (119)
  - Coloboma [Unknown]
  - Dehydration [Unknown]
  - Neonatal respiratory distress [Unknown]
  - Tonsillitis [Unknown]
  - Influenza [Unknown]
  - Hypersensitivity [Unknown]
  - Seasonal allergy [Unknown]
  - Short stature [Unknown]
  - Constipation [Unknown]
  - Contusion [Unknown]
  - Proteinuria [Unknown]
  - Dysmenorrhoea [Unknown]
  - Skin infection [Unknown]
  - Anterior chamber cleavage syndrome [Unknown]
  - Intellectual disability [Unknown]
  - Peptic ulcer [Unknown]
  - Scoliosis [Unknown]
  - Rhinitis [Unknown]
  - Gastrooesophageal reflux disease [Unknown]
  - Dermatitis [Unknown]
  - Strabismus [Unknown]
  - Hypermetropia [Unknown]
  - Urinary tract infection [Unknown]
  - Eye pain [Unknown]
  - Cerebral disorder [Unknown]
  - Overweight [Unknown]
  - Skull malformation [Unknown]
  - Dysmorphism [Unknown]
  - Atrial septal defect [Unknown]
  - Cytogenetic abnormality [Unknown]
  - Multiple congenital abnormalities [Unknown]
  - Gastroenteritis salmonella [Unknown]
  - Tricuspid valve incompetence [Unknown]
  - Glaucoma [Unknown]
  - Haematochezia [Unknown]
  - Appendicitis [Unknown]
  - Dental caries [Unknown]
  - Pharyngitis streptococcal [Unknown]
  - Asthma [Unknown]
  - Nasal congestion [Unknown]
  - Chalazion [Unknown]
  - Cardiac murmur [Unknown]
  - Viral infection [Unknown]
  - Viral rash [Unknown]
  - Ligament sprain [Unknown]
  - Anxiety disorder [Unknown]
  - Malpositioned teeth [Unknown]
  - Developmental hip dysplasia [Unknown]
  - Trisomy 21 [Unknown]
  - Pulmonary valve incompetence [Unknown]
  - Deafness neurosensory [Unknown]
  - Failure to thrive [Unknown]
  - Cerumen impaction [Unknown]
  - Dysuria [Unknown]
  - Cough [Unknown]
  - Vision blurred [Unknown]
  - Sleep apnoea syndrome [Unknown]
  - Behaviour disorder [Unknown]
  - Chronic sinusitis [Unknown]
  - Lymphadenitis [Unknown]
  - Speech disorder developmental [Unknown]
  - Congenital jaw malformation [Unknown]
  - Cataract [Unknown]
  - Growth retardation [Unknown]
  - Croup infectious [Unknown]
  - Conductive deafness [Unknown]
  - Rhinitis allergic [Unknown]
  - Amblyopia [Unknown]
  - Malabsorption [Unknown]
  - Impetigo [Unknown]
  - Arthralgia [Unknown]
  - Chest pain [Unknown]
  - Venom poisoning [Unknown]
  - Cystitis [Unknown]
  - Cellulitis [Unknown]
  - Otitis media chronic [Unknown]
  - Pyrexia [Unknown]
  - Upper respiratory tract infection [Unknown]
  - Tympanic membrane perforation [Unknown]
  - Ear infection [Unknown]
  - Otorrhoea [Unknown]
  - Sever^s disease [Unknown]
  - Dacryostenosis acquired [Unknown]
  - Nasopharyngitis [Unknown]
  - Dermatitis diaper [Unknown]
  - Eustachian tube dysfunction [Unknown]
  - Tachycardia [Unknown]
  - Malocclusion [Unknown]
  - Fatigue [Unknown]
  - Cleft uvula [Unknown]
  - Pyoderma [Unknown]
  - Chorioretinitis [Unknown]
  - Osteochondrosis [Unknown]
  - Foetal exposure during pregnancy [Unknown]
  - Kyphoscoliosis [Unknown]
  - Acute sinusitis [Unknown]
  - Ear pain [Unknown]
  - Otitis media acute [Unknown]
  - Bronchitis chronic [Unknown]
  - Diarrhoea [Unknown]
  - Hypovolaemia [Unknown]
  - Tooth abscess [Unknown]
  - Myopia [Unknown]
  - Exostosis [Unknown]
  - Corneal opacity congenital [Unknown]
  - Developmental glaucoma [Unknown]
  - Developmental delay [Unknown]
  - Adenoiditis [Unknown]
  - Pneumonia [Unknown]
  - Pyelonephritis acute [Unknown]
  - Hyphaema [Unknown]
  - Acquired cystic kidney disease [Unknown]
  - Conjunctivitis [Unknown]
  - Jaundice neonatal [Unknown]
  - Leukocytosis [Unknown]
  - Limb injury [Unknown]
  - Tenosynovitis [Unknown]
  - Gait disturbance [Unknown]
  - Vulvovaginal candidiasis [Unknown]
